FAERS Safety Report 15388413 (Version 1)
Quarter: 2018Q3

REPORT INFORMATION
  Report Type: Spontaneous
  Country: IT (occurrence: IT)
  Receive Date: 20180915
  Receipt Date: 20180915
  Transmission Date: 20181010
  Serious: Yes (Hospitalization)
  Sender: FDA-Public Use
  Company Number: IT-009507513-1809ITA004989

PATIENT
  Age: 88 Year
  Sex: Male

DRUGS (6)
  1. TRITTICO [Suspect]
     Active Substance: TRAZODONE HYDROCHLORIDE
     Dates: start: 20180101, end: 20180707
  2. MIRTAZAPINE. [Suspect]
     Active Substance: MIRTAZAPINE
     Dates: start: 20180101, end: 20180707
  3. COUMADIN [Concomitant]
     Active Substance: WARFARIN SODIUM
  4. QUENTIAX [Suspect]
     Active Substance: QUETIAPINE FUMARATE
     Dates: start: 20180101, end: 20180707
  5. ZOLOFT [Suspect]
     Active Substance: SERTRALINE HYDROCHLORIDE
     Dates: start: 20180101, end: 20180707
  6. LANOXIN [Concomitant]
     Active Substance: DIGOXIN

REACTIONS (1)
  - Sopor [Unknown]

NARRATIVE: CASE EVENT DATE: 20180707
